FAERS Safety Report 4879786-8 (Version None)
Quarter: 2006Q1

REPORT INFORMATION
  Report Type: 
  Country: None (occurrence: None)
  Receive Date: 20060113
  Receipt Date: 20060103
  Transmission Date: 20060701
  Serious: Yes (Life-Threatening)
  Sender: FDA-Public Use
  Company Number: FR-GLAXOSMITHKLINE-B0405998A

PATIENT
  Age: 4 Week
  Sex: Female
  Weight: 3.5 kg

DRUGS (1)
  1. VENTOLIN [Suspect]
     Indication: COUGH
     Dosage: .3ML SINGLE DOSE
     Route: 055
     Dates: start: 20051204, end: 20051204

REACTIONS (6)
  - APNOEA [None]
  - CULTURE URINE POSITIVE [None]
  - CYANOSIS [None]
  - ENTEROBACTER INFECTION [None]
  - PERTUSSIS IDENTIFICATION TEST POSITIVE [None]
  - PSEUDOMONAS INFECTION [None]
